FAERS Safety Report 9284406 (Version 1)
Quarter: 2013Q2

REPORT INFORMATION
  Report Type: Spontaneous
  Country: US (occurrence: US)
  Receive Date: 20130510
  Receipt Date: 20130510
  Transmission Date: 20140414
  Serious: No
  Sender: FDA-Public Use
  Company Number: US-ASTRAZENECA-2013SE30341

PATIENT
  Age: 49 Year
  Sex: Female
  Weight: 54.4 kg

DRUGS (12)
  1. PULMICORT RESPULES [Suspect]
     Indication: ASTHMA
     Route: 055
  2. SYMBICORT [Suspect]
     Indication: ASTHMA
     Dosage: 160 MCG, 2 PUFFS, DAILY
     Route: 055
     Dates: end: 201303
  3. SYMBICORT [Suspect]
     Indication: ASTHMA
     Dosage: 160 MCG, 2 PUFFS ,TWICE DAILY
     Route: 055
     Dates: end: 201303
  4. SYMBICORT [Suspect]
     Indication: ASTHMA
     Dosage: 160 MCG, 2 PUFFS, DAILY
     Route: 055
  5. SYMBICORT [Suspect]
     Indication: ASTHMA
     Dosage: 160 MCG, EVERY OTHER DAY
     Route: 055
  6. SYMBICORT [Suspect]
     Indication: ASTHMA
     Dosage: 160 MCG, EVERY THIRD DAY
     Route: 055
  7. SYMBICORT [Suspect]
     Indication: ASTHMA
     Dosage: UNKNOWN
     Route: 055
  8. XOEPENEX [Suspect]
     Indication: ASTHMA
     Route: 065
  9. MUCINEX D [Concomitant]
     Dosage: THE LOWER DOSE
  10. SUDAFED [Concomitant]
  11. GUAIFENESIN [Concomitant]
  12. SINGULAR [Concomitant]
     Indication: ASTHMA

REACTIONS (20)
  - Asthma [Unknown]
  - Drug intolerance [Unknown]
  - Influenza [Unknown]
  - Sinusitis [Unknown]
  - Immune system disorder [Unknown]
  - Malaise [Unknown]
  - Asthma [Unknown]
  - Ear infection [Unknown]
  - Bronchitis [Unknown]
  - Pyrexia [Unknown]
  - Balance disorder [Unknown]
  - Nasopharyngitis [Unknown]
  - Insomnia [Unknown]
  - Pharyngeal oedema [Unknown]
  - Headache [Unknown]
  - Drug dose omission [Unknown]
  - Off label use [Unknown]
  - Off label use [Unknown]
  - Intentional drug misuse [Unknown]
  - Drug ineffective [Unknown]
